FAERS Safety Report 9548864 (Version 1)
Quarter: 2013Q3

REPORT INFORMATION
  Report Type: Spontaneous
  Country: US (occurrence: None)
  Receive Date: 20130724
  Receipt Date: 20130724
  Transmission Date: 20140515
  Serious: Yes (Other)
  Sender: FDA-Public Use
  Company Number: PHEH2012US018540

PATIENT
  Age: 45 Year
  Sex: Male

DRUGS (1)
  1. FANAPT [Suspect]
     Dosage: MORE THAN 10 MG
     Route: 048

REACTIONS (2)
  - Electrocardiogram QT prolonged [None]
  - Incorrect dose administered [None]
